FAERS Safety Report 5074998-5 (Version None)
Quarter: 2006Q3

REPORT INFORMATION
  Report Type: 
  Country: None (occurrence: None)
  Receive Date: 20060804
  Receipt Date: 20060720
  Transmission Date: 20061208
  Serious: Yes (Hospitalization)
  Sender: FDA-Public Use
  Company Number: US017224

PATIENT
  Age: 46 Year
  Sex: Female

DRUGS (4)
  1. ACTIQ (SUGAR-FREE) [Suspect]
  2. CARISOPRODOL [Suspect]
     Dates: start: 20040706, end: 20040706
  3. ALPRAZOLAM [Suspect]
     Dates: start: 20040706, end: 20040706
  4. FENTANYL ^JANSSEN^ [Suspect]

REACTIONS (3)
  - HYPOTENSION [None]
  - SUICIDE ATTEMPT [None]
  - TACHYCARDIA [None]
